FAERS Safety Report 25500949 (Version 1)
Quarter: 2025Q3

REPORT INFORMATION
  Report Type: Spontaneous
  Country: US (occurrence: US)
  Receive Date: 20250701
  Receipt Date: 20250701
  Transmission Date: 20251020
  Serious: No
  Sender: MERCK SHARP & DOHME LLC
  Company Number: US-009507513-2298705

PATIENT
  Age: 59 Year
  Sex: Male

DRUGS (1)
  1. JANUVIA [Suspect]
     Active Substance: SITAGLIPTIN PHOSPHATE
     Dosage: 100 MG ONCE DAILY
     Route: 048

REACTIONS (6)
  - Product packaging quantity issue [Unknown]
  - Product packaging quantity issue [Unknown]
  - Product dose omission issue [Unknown]
  - Product use issue [Unknown]
  - Product dose omission issue [Unknown]
  - Product use issue [Unknown]

NARRATIVE: CASE EVENT DATE: 20250401
